FAERS Safety Report 5558654-2 (Version None)
Quarter: 2007Q4

REPORT INFORMATION
  Report Type: 
  Country: None (occurrence: None)
  Receive Date: 20071214
  Receipt Date: 20071210
  Transmission Date: 20080405
  Serious: Yes (Other)
  Sender: FDA-Public Use
  Company Number: JP-BOEHRINGER INGELHEIM PHARMACEUTICALS, INC.-2007-BP-12203NB

PATIENT
  Sex: Male
  Weight: 61 kg

DRUGS (1)
  1. MICARDIS [Suspect]
     Indication: HYPERTENSION
     Route: 048
     Dates: start: 20060628, end: 20060717

REACTIONS (2)
  - BLOOD PRESSURE DECREASED [None]
  - NEOPLASM MALIGNANT [None]
